FAERS Safety Report 14711071 (Version 1)
Quarter: 2018Q2

REPORT INFORMATION
  Report Type: Report from Study
  Country: US (occurrence: US)
  Receive Date: 20180403
  Receipt Date: 20180403
  Transmission Date: 20180711
  Serious: Yes (Other)
  Sender: FDA-Public Use
  Company Number: PHEH2018US011480

PATIENT
  Age: 66 Year
  Sex: Female

DRUGS (2)
  1. COSENTYX [Suspect]
     Active Substance: SECUKINUMAB
     Indication: PSORIASIS
     Dosage: 300 MG, QMO
     Route: 058
  2. COSENTYX [Suspect]
     Active Substance: SECUKINUMAB
     Dosage: 300 MG (2 PENS), EVERY 4 WEEKS
     Route: 058
     Dates: start: 20180320

REACTIONS (4)
  - Decreased immune responsiveness [Unknown]
  - Cystitis [Unknown]
  - Drug effect incomplete [Unknown]
  - Infection susceptibility increased [Unknown]
